FAERS Safety Report 15602009 (Version 3)
Quarter: 2018Q4

REPORT INFORMATION
  Report Type: Spontaneous
  Country: JP (occurrence: JP)
  Receive Date: 20181109
  Receipt Date: 20181208
  Transmission Date: 20190205
  Serious: Yes (Hospitalization)
  Sender: FDA-Public Use
  Company Number: JP-AMGEN-JPNSP2018159523

PATIENT
  Age: 79 Year
  Sex: Female
  Weight: 58.4 kg

DRUGS (11)
  1. FOSRENOL [Suspect]
     Active Substance: LANTHANUM CARBONATE
     Indication: BLOOD PRESSURE MANAGEMENT
     Dosage: 250 MG, TID
     Route: 048
  2. OXAROL [Suspect]
     Active Substance: MAXACALCITOL
     Indication: PRODUCT USED FOR UNKNOWN INDICATION
     Dosage: UNK UNK, Q56H
     Route: 065
     Dates: start: 20160112
  3. FOSRENOL [Suspect]
     Active Substance: LANTHANUM CARBONATE
     Indication: BLOOD PHOSPHORUS INCREASED
  4. RANITIDINE. [Suspect]
     Active Substance: RANITIDINE
     Indication: THYROID FUNCTION TEST ABNORMAL
  5. PARSABIV [Suspect]
     Active Substance: ETELCALCETIDE HYDROCHLORIDE
     Indication: HYPERPARATHYROIDISM SECONDARY
     Dosage: UNK, 3 TIMES/WK
     Route: 041
     Dates: start: 20181023
  6. WARFARIN [Suspect]
     Active Substance: WARFARIN
     Indication: CEREBROVASCULAR ACCIDENT PROPHYLAXIS
     Dosage: 1.5 DF, EVERYDAY
     Route: 048
     Dates: start: 20180606
  7. ALOSENN [Suspect]
     Active Substance: SENNA LEAF
     Indication: CONSTIPATION
     Dosage: 2 DF, QD
     Route: 048
  8. AMLODIPINE [Concomitant]
     Active Substance: AMLODIPINE BESYLATE
     Indication: BLOOD PRESSURE MANAGEMENT
     Dosage: 5 MG, QD
     Route: 048
  9. AZILVA [Concomitant]
     Active Substance: AZILSARTAN KAMEDOXOMIL
     Indication: BLOOD PRESSURE MANAGEMENT
     Dosage: 20 MG, QD
     Route: 048
  10. RANITIDINE. [Suspect]
     Active Substance: RANITIDINE
     Indication: THYROID FUNCTION TEST ABNORMAL
     Dosage: 150 MG, QD
     Route: 048
  11. REBAMIPIDE [Suspect]
     Active Substance: REBAMIPIDE
     Indication: GASTRITIS PROPHYLAXIS
     Dosage: 100 MG, TID
     Route: 048

REACTIONS (2)
  - Fall [Unknown]
  - Subcutaneous haematoma [Recovered/Resolved]

NARRATIVE: CASE EVENT DATE: 20181024
